FAERS Safety Report 5093032-4 (Version None)
Quarter: 2006Q3

REPORT INFORMATION
  Report Type: 
  Country: None (occurrence: None)
  Receive Date: 20060728
  Receipt Date: 20060619
  Transmission Date: 20061208
  Serious: Yes (Life-Threatening)
  Sender: FDA-Public Use
  Company Number: 252717

PATIENT
  Age: 63 Year
  Sex: Female
  Weight: 58.5 kg

DRUGS (17)
  1. LEVEMIR FLEXPEN(INSULIN DETERMIR) SOLUTION FOR INJECTION,.0024MOL/L [Suspect]
     Indication: INSULIN-REQUIRING TYPE II DIABETES MELLITUS
     Dosage: 8 LU, QD, SUBCUTANEOUS
     Route: 058
     Dates: start: 20060421, end: 20060422
  2. NOVOLOG [Suspect]
     Indication: INSULIN-REQUIRING TYPE II DIABETES MELLITUS
     Dosage: SEE IMAGE
     Route: 058
     Dates: start: 20060410, end: 20060421
  3. NOVOLOG [Suspect]
     Indication: INSULIN-REQUIRING TYPE II DIABETES MELLITUS
     Dosage: SEE IMAGE
     Route: 058
     Dates: start: 20060422, end: 20060422
  4. PREDNISONE TAB [Concomitant]
  5. ZYRTEC /00884302/(CETIRIZINE HYDROCHLORIDE) [Concomitant]
  6. PULMICORT [Concomitant]
  7. ACIPHEX [Concomitant]
  8. METOCLOPRAM GI (METOCLOPRAMIDE HYDROCHLORIDE) [Concomitant]
  9. VERAPAMIL [Concomitant]
  10. BENICAR [Concomitant]
  11. LISINOPRIL [Concomitant]
  12. CLONIDINE [Concomitant]
  13. KLOR-CON [Concomitant]
  14. LIPITOR [Concomitant]
  15. COUMADIN (WARFAR SODIUM) [Concomitant]
  16. MULTIVITAMINS (THIAMINE HYDROCHLORIDE, RIBOFLAVIN, RETINOL, PANTHENOL, [Concomitant]
  17. ALBUTEROL /00319501/ (SALBUTAMOL) [Concomitant]

REACTIONS (1)
  - ANAPHYLACTIC REACTION [None]
